FAERS Safety Report 8871791 (Version 1)
Quarter: 2012Q4

REPORT INFORMATION
  Report Type: 
  Country: IL (occurrence: IL)
  Receive Date: 20121029
  Receipt Date: 20121029
  Transmission Date: 20130627
  Serious: Yes (Hospitalization)
  Sender: FDA-Public Use
  Company Number: PHHY2012IL095643

PATIENT
  Sex: Male

DRUGS (2)
  1. TASIGNA [Suspect]
     Indication: CHRONIC MYELOID LEUKAEMIA
     Dosage: 150 mg, BID
     Route: 048
  2. TASIGNA [Suspect]
     Dosage: 300 mg, BID
     Route: 048

REACTIONS (2)
  - Pulmonary oedema [Recovering/Resolving]
  - Incorrect dose administered [Unknown]
